FAERS Safety Report 9447639 (Version 1)
Quarter: 2013Q3

REPORT INFORMATION
  Report Type: Spontaneous
  Country: FR (occurrence: FR)
  Receive Date: 20130805
  Receipt Date: 20130805
  Transmission Date: 20140515
  Serious: Yes (Other)
  Sender: FDA-Public Use
  Company Number: VAL_02670_2013

PATIENT
  Age: 29 Year
  Sex: Female

DRUGS (2)
  1. PARLODEL [Suspect]
     Indication: PRODUCT USED FOR UNKNOWN INDICATION
     Route: 048
     Dates: start: 201206
  2. PERGOTIME [Suspect]
     Indication: INFERTILITY
     Route: 048
     Dates: start: 20130520, end: 20130522

REACTIONS (5)
  - Pelvic pain [None]
  - Faecaloma [None]
  - Treatment failure [None]
  - Abdominal pain [None]
  - Gastrointestinal motility disorder [None]
